FAERS Safety Report 4602209-0 (Version None)
Quarter: 2005Q1

REPORT INFORMATION
  Report Type: 
  Country: None (occurrence: None)
  Receive Date: 20050215
  Receipt Date: 20041209
  Transmission Date: 20050727
  Serious: Yes (Other)
  Sender: FDA-Public Use
  Company Number: MC200400900

PATIENT
  Sex: 0

DRUGS (1)
  1. ANGIOMAX [Suspect]
     Dosage: 0.75 MG/KG, BOLUS, IV BOLUS; SEE IMAGE
     Route: 040

REACTIONS (1)
  - CORONARY ARTERY THROMBOSIS [None]
